FAERS Safety Report 5340727-0 (Version None)
Quarter: 2007Q2

REPORT INFORMATION
  Report Type: 
  Country: None (occurrence: None)
  Receive Date: 20070405
  Receipt Date: 20061214
  Transmission Date: 20071010
  Serious: No
  Sender: FDA-Public Use
  Company Number: US200612003421

PATIENT
  Sex: Female

DRUGS (1)
  1. CYMBALTA [Suspect]

REACTIONS (3)
  - INSOMNIA [None]
  - OBSESSIVE THOUGHTS [None]
  - SUICIDAL IDEATION [None]
